FAERS Safety Report 7961054-9 (Version None)
Quarter: 2011Q4

REPORT INFORMATION
  Report Type: 
  Country: None (occurrence: None)
  Receive Date: 20111202
  Receipt Date: 20111128
  Transmission Date: 20120403
  Serious: Yes (Hospitalization, Other)
  Sender: FDA-Public Use
  Company Number: AUR-APL-2011-05962

PATIENT
  Age: 53 Year
  Sex: Male

DRUGS (10)
  1. AMLODIPINE [Concomitant]
  2. ASPIRIN [Concomitant]
  3. OMEPRAZOLE [Concomitant]
  4. RAMIPRIL [Concomitant]
  5. ATORVASTATIN [Suspect]
     Indication: PRODUCT USED FOR UNKNOWN INDICATION
     Dosage: 40 MG (40 MG, 1 IN 1 D), ORAL
     Route: 048
     Dates: end: 20110915
  6. NAPROXEN [Concomitant]
  7. METFORMIN HCL [Suspect]
     Indication: DIABETES MELLITUS
     Dosage: 2 GM (1 GM, 2 IN 1 D), ORAL
     Route: 048
     Dates: end: 20110915
  8. ATENOLOL [Concomitant]
  9. QUININE [Concomitant]
  10. NOVOMIX (INSULIN ASPART) [Concomitant]

REACTIONS (6)
  - IATROGENIC INJURY [None]
  - RHABDOMYOLYSIS [None]
  - BACK PAIN [None]
  - RENAL FAILURE ACUTE [None]
  - MUSCLE SPASMS [None]
  - LETHARGY [None]
